FAERS Safety Report 16973545 (Version 3)
Quarter: 2020Q2

REPORT INFORMATION
  Report Type: Spontaneous
  Country: PT (occurrence: PT)
  Receive Date: 20191030
  Receipt Date: 20200502
  Transmission Date: 20200713
  Serious: Yes (Disabling)
  Sender: FDA-Public Use
  Company Number: PT-ACCORD-159114

PATIENT
  Age: 84 Year
  Sex: Female

DRUGS (5)
  1. EZETIMIBE. [Suspect]
     Active Substance: EZETIMIBE
     Indication: HYPERCHOLESTEROLAEMIA
     Route: 048
     Dates: end: 20191008
  2. XALATAN [Concomitant]
     Active Substance: LATANOPROST
     Indication: GLAUCOMA
     Route: 047
  3. HYGROTON [Concomitant]
     Active Substance: CHLORTHALIDONE
     Dosage: TAKE HALF TABLET
     Route: 048
  4. CILESTODERME [Concomitant]
     Indication: ERYTHEMA
  5. FENERGAN [Concomitant]
     Indication: URTICARIA
     Route: 061

REACTIONS (6)
  - Malaise [Unknown]
  - Rash macular [Unknown]
  - Pruritus [Unknown]
  - Joint swelling [Unknown]
  - Myalgia [Unknown]
  - Erythema [Unknown]
